FAERS Safety Report 6253948-X (Version None)
Quarter: 2009Q3

REPORT INFORMATION
  Report Type: 
  Country: None (occurrence: None)
  Receive Date: 20090702
  Receipt Date: 20090622
  Transmission Date: 20100115
  Serious: Yes (Other)
  Sender: FDA-Public Use
  Company Number: FR-JNJFOC-20090304706

PATIENT
  Age: 58 Year
  Sex: Female
  Weight: 82 kg

DRUGS (4)
  1. CAELYX [Suspect]
     Route: 042
  2. CAELYX [Suspect]
     Dosage: CYCLE 3
     Route: 042
  3. CAELYX [Suspect]
     Indication: OVARIAN CANCER
     Dosage: CYCLES 1 AND 2
     Route: 042
  4. ONDANSETRON HCL [Concomitant]
     Route: 065

REACTIONS (2)
  - RASH PUSTULAR [None]
  - SKIN REACTION [None]
